FAERS Safety Report 17290411 (Version 1)
Quarter: 2020Q1

REPORT INFORMATION
  Report Type: Report from Study
  Country: US (occurrence: US)
  Receive Date: 20200121
  Receipt Date: 20200121
  Transmission Date: 20200409
  Serious: No
  Sender: FDA-Public Use
  Company Number: NVSC2020US012729

PATIENT
  Sex: Female

DRUGS (1)
  1. GILENYA [Suspect]
     Active Substance: FINGOLIMOD HYDROCHLORIDE
     Indication: MULTIPLE SCLEROSIS
     Dosage: Q0.5 MG, QD
     Route: 048
     Dates: start: 20180201

REACTIONS (3)
  - Malaise [Unknown]
  - Cough [Unknown]
  - Respiratory disorder [Unknown]
